FAERS Safety Report 5981095-0 (Version None)
Quarter: 2008Q4

REPORT INFORMATION
  Report Type: 
  Country: None (occurrence: None)
  Receive Date: 20081205
  Receipt Date: 20081125
  Transmission Date: 20090506
  Serious: Yes (Life-Threatening)
  Sender: FDA-Public Use
  Company Number: US-BAXTER-2008BH013268

PATIENT
  Age: 50 Year
  Sex: Female

DRUGS (3)
  1. DOBUTAMINE HYDROCHLORIDE [Suspect]
     Indication: CARDIAC STRESS TEST
     Route: 042
  2. ESCITALOPRAM [Concomitant]
     Indication: DRUG USE FOR UNKNOWN INDICATION
     Route: 065
  3. ALBUTEROL [Concomitant]
     Indication: DRUG USE FOR UNKNOWN INDICATION
     Route: 055

REACTIONS (1)
  - ATRIOVENTRICULAR BLOCK COMPLETE [None]
